FAERS Safety Report 9649096 (Version 4)
Quarter: 2015Q2

REPORT INFORMATION
  Report Type: Spontaneous
  Country: US (occurrence: None)
  Receive Date: 20131018
  Receipt Date: 20150420
  Transmission Date: 20150821
  Serious: No
  Sender: FDA-Public Use
  Company Number: AEGR000127

PATIENT
  Age: 56 Year
  Sex: Female
  Weight: 63.5 kg

DRUGS (15)
  1. SYNTHROID [Concomitant]
     Active Substance: LEVOTHYROXINE SODIUM
  2. RANEXA (RANOLAZINE) [Concomitant]
  3. BIOFLEX (METHOCARBAMOL, PARACETAMOL) [Concomitant]
  4. VITAMIN B COMPLEX (CALCIUM PANTOTHENATE, NICOTINAMIDE, PYRIDOXINE HYDROCHLORIDE, [Concomitant]
  5. VITAMIN D (ERGOCALCIFEROL) [Concomitant]
     Active Substance: ERGOCALCIFEROL
  6. JUXTAPID [Suspect]
     Active Substance: LOMITAPIDE MESYLATE
     Indication: TYPE IIA HYPERLIPIDAEMIA
     Route: 048
     Dates: start: 20130812
  7. CLONAZEPAM. [Concomitant]
     Active Substance: CLONAZEPAM
  8. PENTOXIFYLLINE. [Concomitant]
     Active Substance: PENTOXIFYLLINE
  9. EFFIENT (PRASUGREL HYDROCHLORIDE) [Concomitant]
  10. FLONASE [Concomitant]
     Active Substance: FLUTICASONE PROPIONATE
  11. METOPROLOL (METOPROLOL TARTRATE) [Concomitant]
     Active Substance: METOPROLOL TARTRATE
  12. OMEGA 3 (FISH OIL) [Concomitant]
     Active Substance: OMEGA-3 FATTY ACIDS
  13. POTASSIUM (POTASSIUM CHLORIDE) [Concomitant]
  14. LOSARTAN (LOSARTAN POSTASSIUM) [Concomitant]
  15. VITAMIN E (TOCOPHERYL ACETATE) [Concomitant]

REACTIONS (9)
  - Weight decreased [None]
  - Nausea [None]
  - Abdominal pain upper [None]
  - Dyspepsia [None]
  - Gastroenteritis viral [None]
  - Vomiting [None]
  - Diarrhoea [None]
  - Decreased appetite [None]
  - Flatulence [None]

NARRATIVE: CASE EVENT DATE: 201308
